FAERS Safety Report 7268049-1 (Version None)
Quarter: 2010Q4

REPORT INFORMATION
  Report Type: 
  Country: None (occurrence: None)
  Receive Date: 20101206
  Receipt Date: 20100812
  Transmission Date: 20110411
  Serious: Yes (Hospitalization, Other)
  Sender: FDA-Public Use
  Company Number: 2010SP043932

PATIENT
  Sex: Female

DRUGS (1)
  1. SAPHRIS [Suspect]
     Indication: SCHIZOPHRENIA
     Dosage: 5 MG; BID; SL
     Route: 060
     Dates: start: 20100809

REACTIONS (1)
  - PSYCHOTIC DISORDER [None]
